FAERS Safety Report 7068312-3 (Version None)
Quarter: 2010Q4

REPORT INFORMATION
  Report Type: 
  Country: None (occurrence: None)
  Receive Date: 20101028
  Receipt Date: 20101019
  Transmission Date: 20110411
  Serious: Yes (Other)
  Sender: FDA-Public Use
  Company Number: A0849853A

PATIENT
  Sex: Female

DRUGS (2)
  1. TYKERB [Suspect]
     Indication: BREAST CANCER METASTATIC
     Dosage: 1250MG PER DAY
     Route: 048
     Dates: start: 20091112, end: 20101019
  2. XELODA [Suspect]
     Indication: BREAST CANCER METASTATIC
     Route: 065
     Dates: end: 20101019

REACTIONS (5)
  - BREAST CANCER METASTATIC [None]
  - ERYTHEMA [None]
  - FEELING HOT [None]
  - GAIT DISTURBANCE [None]
  - MALIGNANT NEOPLASM PROGRESSION [None]
